FAERS Safety Report 16338821 (Version 1)
Quarter: 2019Q2

REPORT INFORMATION
  Report Type: Spontaneous
  Country: US (occurrence: US)
  Receive Date: 20190521
  Receipt Date: 20190521
  Transmission Date: 20190711
  Serious: No
  Sender: FDA-Public Use
  Company Number: US-ANIPHARMA-2019-US-005842

PATIENT
  Age: 45 Year
  Sex: Male

DRUGS (7)
  1. DIVALPROEX [Suspect]
     Active Substance: DIVALPROEX SODIUM
     Dosage: 500MG UNK
     Route: 065
  2. DEPAKOTE [Suspect]
     Active Substance: DIVALPROEX SODIUM
     Dosage: UNK
  3. TEMAZEPAM. [Suspect]
     Active Substance: TEMAZEPAM
     Dosage: UNK
     Route: 065
  4. PROPRANOLOL EXTENDED RELEASE CAPSULES (NON-SPECIFIC) [Suspect]
     Active Substance: PROPRANOLOL HYDROCHLORIDE
     Indication: PRODUCT USED FOR UNKNOWN INDICATION
     Dosage: UNK
     Route: 065
  5. ABILIFY MAINTENA [Suspect]
     Active Substance: ARIPIPRAZOLE
     Dosage: 400 MG, QM
     Route: 065
     Dates: start: 201812
  6. ABILIFY [Suspect]
     Active Substance: ARIPIPRAZOLE
     Dosage: UNK
     Route: 048
     Dates: start: 201812
  7. GABAPENTLN [Suspect]
     Active Substance: GABAPENTIN
     Dosage: 100MG UNK
     Route: 065

REACTIONS (11)
  - Retching [Unknown]
  - Insomnia [Unknown]
  - Malaise [Unknown]
  - Disturbance in attention [Unknown]
  - Fatigue [Unknown]
  - Restless legs syndrome [Unknown]
  - Vomiting [Unknown]
  - Mood swings [Unknown]
  - Pain [Unknown]
  - Feeling abnormal [Unknown]
  - Restlessness [Unknown]

NARRATIVE: CASE EVENT DATE: 201901
